FAERS Safety Report 4954400-1 (Version None)
Quarter: 2006Q1

REPORT INFORMATION
  Report Type: 
  Country: None (occurrence: None)
  Receive Date: 20060322
  Receipt Date: 20060307
  Transmission Date: 20060701
  Serious: Yes (Hospitalization, Disabling)
  Sender: FDA-Public Use
  Company Number: 2006-BP-02574RO

PATIENT
  Age: 48 Year
  Sex: Female

DRUGS (9)
  1. METHOTREXATE [Suspect]
     Indication: ACUTE LYMPHOCYTIC LEUKAEMIA
     Dosage: 6 DOSES OF 15 MG (NR), IT 6 DOSES
     Route: 037
  2. CYCLOPHOSPHAMIDE [Concomitant]
  3. DEXAMETHASONE [Concomitant]
  4. L-ASPARAGINAS (ASPARAGINASE) [Concomitant]
  5. VINCRISTINE [Concomitant]
  6. DAUNORUBICIN HCL [Concomitant]
  7. PREDNISOLONE [Concomitant]
  8. MERCAPTOPURINE [Concomitant]
  9. CYTARABINE [Concomitant]

REACTIONS (16)
  - BLOOD ALBUMIN DECREASED [None]
  - DEMYELINATION [None]
  - DIABETES MELLITUS NON-INSULIN-DEPENDENT [None]
  - DIABETIC NEUROPATHY [None]
  - FAECAL INCONTINENCE [None]
  - HYPERREFLEXIA [None]
  - HYPOREFLEXIA [None]
  - INFLAMMATION [None]
  - LEUKOCYTOSIS [None]
  - LEUKOENCEPHALOPATHY [None]
  - NEUROTOXICITY [None]
  - PARAPARESIS [None]
  - SENSORY DISTURBANCE [None]
  - SPINAL CORD OEDEMA [None]
  - STEM CELL TRANSPLANT [None]
  - URINARY INCONTINENCE [None]
